FAERS Safety Report 19981356 (Version 1)
Quarter: 2021Q4

REPORT INFORMATION
  Report Type: Spontaneous
  Country: CA (occurrence: CA)
  Receive Date: 20211022
  Receipt Date: 20211022
  Transmission Date: 20220304
  Serious: Yes (Other)
  Sender: FDA-Public Use
  Company Number: CA-VER-202100224

PATIENT
  Age: 58 Year
  Sex: Male

DRUGS (10)
  1. LEUPROLIDE ACETATE [Suspect]
     Active Substance: LEUPROLIDE ACETATE
     Indication: Metastases to bone
     Route: 065
  2. BICALUTAMIDE [Suspect]
     Active Substance: BICALUTAMIDE
     Route: 048
  3. RITONAVIR [Suspect]
     Active Substance: RITONAVIR
     Route: 065
  4. RALTEGRAVIR [Concomitant]
     Active Substance: RALTEGRAVIR
     Route: 065
  5. ETRAVIRINE [Suspect]
     Active Substance: ETRAVIRINE
     Route: 065
  6. ENZALUTAMIDE [Suspect]
     Active Substance: ENZALUTAMIDE
     Route: 065
  7. EMTRICITABINE+TENOFO VIR ALAFENAMIDE FUMARATE [Concomitant]
     Route: 065
  8. DOLUTEGRAVIR SODIUM [Suspect]
     Active Substance: DOLUTEGRAVIR SODIUM
     Route: 065
  9. DARUNAVIR [Suspect]
     Active Substance: DARUNAVIR
     Route: 065
  10. RITONAVIR [Suspect]
     Active Substance: RITONAVIR

REACTIONS (4)
  - Drug ineffective [Unknown]
  - Drug interaction [Unknown]
  - Drug level decreased [Unknown]
  - Prostate cancer [Unknown]
